FAERS Safety Report 5604608-7 (Version None)
Quarter: 2008Q1

REPORT INFORMATION
  Report Type: 
  Country: None (occurrence: None)
  Receive Date: 20080128
  Receipt Date: 20080122
  Transmission Date: 20080703
  Serious: Yes (Hospitalization)
  Sender: FDA-Public Use
  Company Number: IT-ASTRAZENECA-2008SE00384

PATIENT
  Age: 78 Year
  Sex: Female

DRUGS (6)
  1. ZESTRIL [Suspect]
     Indication: HYPERTENSION
     Route: 048
     Dates: start: 20070101, end: 20080103
  2. CORDARONE [Suspect]
     Indication: ANGINA PECTORIS
     Route: 048
     Dates: start: 20070101, end: 20080103
  3. COUMADIN [Concomitant]
     Route: 048
  4. LASIX [Concomitant]
     Route: 048
  5. LIMPIDEX [Concomitant]
     Route: 048
  6. MONOKET [Concomitant]
     Route: 048

REACTIONS (3)
  - ELECTROCARDIOGRAM QT PROLONGED [None]
  - HYPERTENSIVE CRISIS [None]
  - RENAL FAILURE [None]
